FAERS Safety Report 9354496 (Version 2)
Quarter: 2013Q3

REPORT INFORMATION
  Report Type: Spontaneous
  Country: US (occurrence: US)
  Receive Date: 20130618
  Receipt Date: 20130722
  Transmission Date: 20140515
  Serious: No
  Sender: FDA-Public Use
  Company Number: US-009507513-1306USA003071

PATIENT
  Sex: Male
  Weight: 81.18 kg

DRUGS (3)
  1. CLARITIN-D-24 [Suspect]
     Indication: HYPERSENSITIVITY
     Dosage: 10 MG, UNKNOWN
     Route: 048
  2. CLARITIN-D-24 [Suspect]
     Indication: RHINORRHOEA
  3. WARFARIN [Concomitant]
     Indication: THROMBOSIS
     Dosage: UNK, UNKNOWN

REACTIONS (1)
  - Dry throat [Unknown]
